FAERS Safety Report 12797709 (Version 1)
Quarter: 2016Q3

REPORT INFORMATION
  Report Type: Spontaneous
  Country: US (occurrence: US)
  Receive Date: 20160930
  Receipt Date: 20160930
  Transmission Date: 20161109
  Serious: No
  Sender: FDA-Public Use
  Company Number: US-GLAXOSMITHKLINE-US2016GSK142760

PATIENT
  Age: 55 Year
  Sex: Male

DRUGS (2)
  1. TANZEUM [Suspect]
     Active Substance: ALBIGLUTIDE
     Dosage: 50 MG, WE
  2. TANZEUM [Suspect]
     Active Substance: ALBIGLUTIDE
     Indication: TYPE 2 DIABETES MELLITUS
     Dosage: 30 MG, WE
     Route: 042

REACTIONS (5)
  - Drug ineffective [Not Recovered/Not Resolved]
  - Vision blurred [Not Recovered/Not Resolved]
  - Circumstance or information capable of leading to medication error [Unknown]
  - Device use error [Unknown]
  - Product preparation error [Unknown]

NARRATIVE: CASE EVENT DATE: 20160924
